FAERS Safety Report 23677789 (Version 1)
Quarter: 2024Q1

REPORT INFORMATION
  Report Type: Spontaneous
  Country: CN (occurrence: CN)
  Receive Date: 20240327
  Receipt Date: 20240327
  Transmission Date: 20240410
  Serious: Yes (Other)
  Sender: FDA-Public Use
  Company Number: CN-OTSUKA-2024_007608

PATIENT
  Age: 67 Year
  Sex: Male

DRUGS (1)
  1. TOLVAPTAN [Suspect]
     Active Substance: TOLVAPTAN
     Indication: Polyuria
     Dosage: 15 MG, QD
     Route: 048
     Dates: start: 20240316, end: 20240318

REACTIONS (3)
  - Hyperchloraemia [Recovering/Resolving]
  - Hypernatraemia [Recovering/Resolving]
  - Product use in unapproved indication [Unknown]

NARRATIVE: CASE EVENT DATE: 20240316
